FAERS Safety Report 12444950 (Version 2)
Quarter: 2016Q3

REPORT INFORMATION
  Report Type: Spontaneous
  Country: US (occurrence: US)
  Receive Date: 20160607
  Receipt Date: 20160712
  Transmission Date: 20161109
  Serious: Yes (Other)
  Sender: FDA-Public Use
  Company Number: US-GLAXOSMITHKLINE-US2016080083

PATIENT
  Age: 23 Year
  Sex: Female

DRUGS (4)
  1. BENLYSTA [Suspect]
     Active Substance: BELIMUMAB
     Indication: SYSTEMIC LUPUS ERYTHEMATOSUS
     Dosage: UNK
     Dates: start: 20141107
  2. PLAQUENIL [Suspect]
     Active Substance: HYDROXYCHLOROQUINE SULFATE
  3. CELLCEPT [Suspect]
     Active Substance: MYCOPHENOLATE MOFETIL\MYCOPHENOLATE MOFETIL HYDROCHLORIDE
  4. BENLYSTA [Suspect]
     Active Substance: BELIMUMAB
     Dosage: UNK
     Dates: start: 201607

REACTIONS (7)
  - Jaundice [Unknown]
  - Acute hepatic failure [Unknown]
  - Hyperbilirubinaemia [Recovering/Resolving]
  - Ocular icterus [Unknown]
  - Abdominal pain [Unknown]
  - Hepatitis [Unknown]
  - Transaminases increased [Not Recovered/Not Resolved]
